FAERS Safety Report 8815496 (Version 2)
Quarter: 2012Q4

REPORT INFORMATION
  Report Type: 
  Country: FR (occurrence: FR)
  Receive Date: 20120928
  Receipt Date: 20121130
  Transmission Date: 20130627
  Serious: Yes (Hospitalization, Other)
  Sender: FDA-Public Use
  Company Number: FR-GLAXOSMITHKLINE-B0832517A

PATIENT
  Age: 75 Year
  Sex: Female
  Weight: 50 kg

DRUGS (3)
  1. ARIXTRA [Suspect]
     Indication: THROMBOPHLEBITIS SUPERFICIAL
     Dosage: 2.5MG Per day
     Route: 058
     Dates: start: 20120216, end: 20120221
  2. LERCAN [Concomitant]
     Indication: HYPERTENSION
  3. ATENOLOL [Concomitant]
     Indication: HYPERTENSION

REACTIONS (1)
  - Haematoma [Recovered/Resolved]
